FAERS Safety Report 5226039-4 (Version None)
Quarter: 2007Q1

REPORT INFORMATION
  Report Type: 
  Country: None (occurrence: None)
  Receive Date: 20070129
  Receipt Date: 20070111
  Transmission Date: 20070707
  Serious: Yes (Hospitalization, Other)
  Sender: FDA-Public Use
  Company Number: PAR_1266_2007

PATIENT
  Age: 30 Year
  Sex: Female

DRUGS (3)
  1. IBUPROFEN [Suspect]
     Dosage: DF
  2. NAPROXEN [Suspect]
     Dosage: DF PO
     Route: 048
     Dates: start: 20050601
  3. ASPIRIN [Suspect]
     Dosage: DF PO
     Route: 048

REACTIONS (10)
  - ABDOMINAL DISCOMFORT [None]
  - EOSINOPHIL COUNT INCREASED [None]
  - FLUSHING [None]
  - FORCED EXPIRATORY VOLUME DECREASED [None]
  - HEART RATE INCREASED [None]
  - PULMONARY OEDEMA [None]
  - RASH [None]
  - SHOCK [None]
  - THROAT IRRITATION [None]
  - URINE ANALYSIS ABNORMAL [None]
